FAERS Safety Report 8287889-3 (Version None)
Quarter: 2012Q2

REPORT INFORMATION
  Report Type: 
  Country: None (occurrence: None)
  Receive Date: 20120416
  Receipt Date: 20120412
  Transmission Date: 20120825
  Serious: Yes (Life-Threatening)
  Sender: FDA-Public Use
  Company Number: ES-B.I. PHARMACEUTICALS,INC./RIDGEFIELD-2012-ES-00155ES

PATIENT
  Age: 89 Year
  Sex: Female

DRUGS (1)
  1. PRAMIPEXOLE DIHYDROCHLORIDE [Suspect]
     Indication: DYSTONIA
     Route: 048
     Dates: start: 20061101, end: 20070510

REACTIONS (1)
  - ACUTE MYOCARDIAL INFARCTION [None]
